FAERS Safety Report 26120469 (Version 4)
Quarter: 2025Q4

REPORT INFORMATION
  Report Type: Report from Study
  Country: US (occurrence: US)
  Receive Date: 20251204
  Receipt Date: 20251218
  Transmission Date: 20260117
  Serious: Yes (Death, Other)
  Sender: ALEXION PHARMACEUTICALS
  Company Number: US-AstraZeneca-CH-01006802A

PATIENT
  Age: 77 Year
  Sex: Male
  Weight: 82.54 kg

DRUGS (1)
  1. DAPAGLIFLOZIN [Suspect]
     Active Substance: DAPAGLIFLOZIN
     Dosage: 5 MILLIGRAM, QD
     Route: 061
     Dates: start: 20230803

REACTIONS (1)
  - Death [Fatal]

NARRATIVE: CASE EVENT DATE: 20250503
